FAERS Safety Report 12361135 (Version 1)
Quarter: 2016Q2

REPORT INFORMATION
  Report Type: Spontaneous
  Country: US (occurrence: US)
  Receive Date: 20160512
  Receipt Date: 20160512
  Transmission Date: 20160815
  Serious: No
  Sender: FDA-Public Use
  Company Number: US-BAUSCH-BL-2015-019774

PATIENT
  Sex: Female

DRUGS (4)
  1. XALATAN [Concomitant]
     Active Substance: LATANOPROST
     Route: 061
     Dates: start: 20030122, end: 20040504
  2. LATANOPROST. [Suspect]
     Active Substance: LATANOPROST
     Indication: GLAUCOMA
     Route: 065
     Dates: start: 20130305, end: 20150317
  3. XALATAN [Concomitant]
     Active Substance: LATANOPROST
     Indication: GLAUCOMA
     Route: 061
     Dates: start: 19970625, end: 20000107
  4. XALATAN [Concomitant]
     Active Substance: LATANOPROST
     Route: 061
     Dates: start: 20090526, end: 20130305

REACTIONS (1)
  - Eye irritation [Unknown]
